FAERS Safety Report 13746708 (Version 2)
Quarter: 2017Q3

REPORT INFORMATION
  Report Type: Spontaneous
  Country: US (occurrence: US)
  Receive Date: 20170712
  Receipt Date: 20170822
  Transmission Date: 20171127
  Serious: No
  Sender: FDA-Public Use
  Company Number: US-009507513-1707USA000098

PATIENT
  Age: 58 Year

DRUGS (5)
  1. HALCION [Concomitant]
     Active Substance: TRIAZOLAM
  2. ATENOLOL. [Concomitant]
     Active Substance: ATENOLOL
  3. ESTRADIOL. [Concomitant]
     Active Substance: ESTRADIOL
  4. ZEPATIER [Suspect]
     Active Substance: ELBASVIR\GRAZOPREVIR
     Indication: HEPATITIS C
     Dosage: DOSE: 50-100 MG, 1 TABLET BY MOUTH EVERY DAY
     Route: 048
  5. ASPIRIN. [Concomitant]
     Active Substance: ASPIRIN

REACTIONS (6)
  - Insomnia [Unknown]
  - Alopecia [Unknown]
  - Fatigue [Unknown]
  - Decreased appetite [Unknown]
  - Headache [Unknown]
  - Blood sodium decreased [Unknown]

NARRATIVE: CASE EVENT DATE: 20170712
